FAERS Safety Report 11052705 (Version 4)
Quarter: 2019Q4

REPORT INFORMATION
  Report Type: Spontaneous
  Country: US (occurrence: US)
  Receive Date: 20150421
  Receipt Date: 20191017
  Transmission Date: 20200122
  Serious: Yes (Other)
  Sender: FDA-Public Use
  Company Number: US-JNJFOC-20131112603

PATIENT
  Age: 17 Year
  Sex: Male

DRUGS (19)
  1. CLONIDINE. [Suspect]
     Active Substance: CLONIDINE
     Indication: BIPOLAR DISORDER
     Route: 065
  2. RISPERIDONE. [Suspect]
     Active Substance: RISPERIDONE
     Indication: ABNORMAL BEHAVIOUR
     Dosage: WITH VARYING DOSES OF 0.25 MG, 0.5 MG, 1 MG, 1.5 MG, 2 MG, 3 MG
     Route: 048
     Dates: start: 20031101, end: 20060318
  3. DESMOPRESSIN [Concomitant]
     Active Substance: DESMOPRESSIN
     Dosage: 1 TO 2 MG
     Route: 065
  4. NEURONTIN [Concomitant]
     Active Substance: GABAPENTIN
     Route: 065
  5. RISPERIDONE. [Suspect]
     Active Substance: RISPERIDONE
     Indication: ATTENTION DEFICIT/HYPERACTIVITY DISORDER
  6. GEODON [Concomitant]
     Active Substance: ZIPRASIDONE HYDROCHLORIDE\ZIPRASIDONE MESYLATE
     Dosage: 10 TO 20 MG
     Route: 065
     Dates: start: 200603
  7. RISPERIDONE. [Suspect]
     Active Substance: RISPERIDONE
     Indication: BIPOLAR DISORDER
  8. LITHIUM CARBONATE. [Suspect]
     Active Substance: LITHIUM CARBONATE
     Indication: BIPOLAR DISORDER
     Route: 065
  9. ADDERALL [Concomitant]
     Active Substance: AMPHETAMINE ASPARTATE\AMPHETAMINE SULFATE\DEXTROAMPHETAMINE SACCHARATE\DEXTROAMPHETAMINE SULFATE
     Dosage: 20 TO 40 MG
     Route: 065
  10. ORAP [Concomitant]
     Active Substance: PIMOZIDE
     Dosage: 2 TO 4 MG
     Route: 065
  11. LAMOTRIGINE. [Concomitant]
     Active Substance: LAMOTRIGINE
     Route: 065
  12. CONCERTA [Concomitant]
     Active Substance: METHYLPHENIDATE HYDROCHLORIDE
     Dosage: 18 TO 36 MG.
     Route: 065
  13. METADATE [Concomitant]
     Active Substance: METHYLPHENIDATE HYDROCHLORIDE
     Dosage: 10 TO 30 MG
     Route: 065
  14. DEXTROAMPHET SACCHARAT, AMPHET ASPARTATE, DEXTROAMPHET SULFATE AND AMPHET SULFAT [Concomitant]
     Active Substance: AMPHETAMINE ASPARTATE\AMPHETAMINE SULFATE\DEXTROAMPHETAMINE SACCHARATE\DEXTROAMPHETAMINE SULFATE
     Route: 065
  15. ZOLOFT [Concomitant]
     Active Substance: SERTRALINE HYDROCHLORIDE
     Dosage: 25 TO 50 MG
     Route: 065
  16. TENEX [Concomitant]
     Active Substance: GUANFACINE HYDROCHLORIDE
     Dosage: 1 TO 4 MG
     Route: 065
  17. TOPIRAMATE. [Concomitant]
     Active Substance: TOPIRAMATE
     Route: 065
  18. GUANFACINE. [Concomitant]
     Active Substance: GUANFACINE
     Route: 065
  19. KLONOPIN [Concomitant]
     Active Substance: CLONAZEPAM
     Dosage: 0.5 TO 1.5 MG
     Route: 065

REACTIONS (8)
  - Tic [Unknown]
  - Emotional distress [Unknown]
  - Tremor [Unknown]
  - Tardive dyskinesia [Unknown]
  - Abnormal weight gain [Unknown]
  - Gynaecomastia [Not Recovered/Not Resolved]
  - Urinary incontinence [Unknown]
  - Restlessness [Unknown]

NARRATIVE: CASE EVENT DATE: 2004
